FAERS Safety Report 15607240 (Version 1)
Quarter: 2018Q4

REPORT INFORMATION
  Report Type: Spontaneous
  Country: BR (occurrence: BR)
  Receive Date: 20181112
  Receipt Date: 20181112
  Transmission Date: 20190205
  Serious: Yes (Other)
  Sender: FDA-Public Use
  Company Number: BR-ASTRAZENECA-2018SF46613

PATIENT
  Age: 24439 Day
  Sex: Male
  Weight: 81 kg

DRUGS (2)
  1. VANNAIR [Suspect]
     Active Substance: BUDESONIDE\FORMOTEROL FUMARATE DIHYDRATE
     Indication: COUGH
     Dosage: VANNAIR 160/4.5 MCG ONE SPRAY AS REQUIRED AS REQUIRED
     Route: 055
     Dates: start: 20181103
  2. VANNAIR [Suspect]
     Active Substance: BUDESONIDE\FORMOTEROL FUMARATE DIHYDRATE
     Indication: COUGH
     Dosage: SYMBICRTO TURBUHALER 160/4.5 MCG AS REQUIRED AS REQUIRED
     Route: 055
     Dates: start: 20181103

REACTIONS (7)
  - Product dispensing error [Unknown]
  - Wrong product administered [Unknown]
  - Product use in unapproved indication [Unknown]
  - Wheezing [Unknown]
  - Drug ineffective [Unknown]
  - Off label use [Unknown]
  - Malaise [Unknown]

NARRATIVE: CASE EVENT DATE: 20181103
